FAERS Safety Report 8861281 (Version 1)
Quarter: 2012Q4

REPORT INFORMATION
  Report Type: 
  Country: AR (occurrence: AR)
  Receive Date: 20121026
  Receipt Date: 20121026
  Transmission Date: 20130627
  Serious: Yes (Other)
  Sender: FDA-Public Use
  Company Number: AR-AMGEN-ARGSP2012067747

PATIENT
  Age: 34 Year
  Sex: Female

DRUGS (6)
  1. ENBREL [Suspect]
     Indication: RHEUMATOID ARTHRITIS
     Dosage: 50 mg, weekly
     Route: 058
     Dates: start: 20120806
  2. METHOTREXATE [Concomitant]
     Dosage: UNK
  3. PANTOPRAZOL [Concomitant]
     Dosage: UNK
  4. CORTICOSTEROID NOS [Concomitant]
     Dosage: UNK
  5. DICLOFENAC [Concomitant]
     Dosage: UNK
  6. LEFLUNOMIDE [Concomitant]
     Dosage: UNK

REACTIONS (5)
  - Hip fracture [Recovering/Resolving]
  - Application site discolouration [Unknown]
  - Application site swelling [Unknown]
  - Application site pruritus [Unknown]
  - Application site rash [Recovered/Resolved]
